FAERS Safety Report 8412704-4 (Version None)
Quarter: 2012Q2

REPORT INFORMATION
  Report Type: 
  Country: None (occurrence: None)
  Receive Date: 20120531
  Receipt Date: 20120531
  Transmission Date: 20120825
  Serious: Yes (Other)
  Sender: FDA-Public Use
  Company Number: None

PATIENT
  Age: 33 Year
  Sex: Female
  Weight: 72.5755 kg

DRUGS (2)
  1. SEROQUEL XR [Suspect]
     Indication: DEPRESSION
     Dosage: 50 MG ONCE DAILY PO
     Route: 048
     Dates: start: 20120501, end: 20120501
  2. SEROQUEL XR [Suspect]
     Indication: INSOMNIA
     Dosage: 50 MG ONCE DAILY PO
     Route: 048
     Dates: start: 20120501, end: 20120501

REACTIONS (16)
  - GLOSSODYNIA [None]
  - HYPOAESTHESIA ORAL [None]
  - AMNESIA [None]
  - HEADACHE [None]
  - TONGUE BITING [None]
  - TONGUE DISORDER [None]
  - TONGUE DISCOLOURATION [None]
  - DECREASED APPETITE [None]
  - CEREBROVASCULAR ACCIDENT [None]
  - HYPOAESTHESIA [None]
  - MOTOR DYSFUNCTION [None]
  - DYSPHEMIA [None]
  - INSOMNIA [None]
  - CONFUSIONAL STATE [None]
  - TREMOR [None]
  - SPEECH DISORDER [None]
